FAERS Safety Report 23830461 (Version 1)
Quarter: 2024Q2

REPORT INFORMATION
  Report Type: Spontaneous
  Country: CN (occurrence: CN)
  Receive Date: 20240508
  Receipt Date: 20240508
  Transmission Date: 20240715
  Serious: Yes (Other)
  Sender: FDA-Public Use
  Company Number: CN-MLMSERVICE-20240423-PI036234-00150-1

PATIENT
  Age: 19 Year
  Sex: Male

DRUGS (18)
  1. ARIPIPRAZOLE [Suspect]
     Active Substance: ARIPIPRAZOLE
     Indication: Product used for unknown indication
     Route: 065
  2. FLUCONAZOLE [Suspect]
     Active Substance: FLUCONAZOLE
     Indication: Antifungal treatment
     Route: 065
  3. VINCRISTINE [Suspect]
     Active Substance: VINCRISTINE
     Indication: Alveolar rhabdomyosarcoma
     Dosage: 1.5 MG/M^2, (DMAX= 2.0 MG), D1, D8, D15
     Route: 065
  4. CYCLOPHOSPHAMIDE [Concomitant]
     Active Substance: CYCLOPHOSPHAMIDE
     Indication: Alveolar rhabdomyosarcoma
     Dosage: 1.2 G/M^2 1 CYCLE, D1, VCR ACT-D CTX (FIRST LINE TREATMENT)
     Route: 065
  5. CARBOPLATIN [Concomitant]
     Active Substance: CARBOPLATIN
     Indication: Alveolar rhabdomyosarcoma
     Dosage: 560 MILLIGRAM/KILOGRAM 1 CYCLE, D1, VCR ACT-D+CBP (SECOND LINE TREATMENT)
  6. CARBOPLATIN [Concomitant]
     Active Substance: CARBOPLATIN
     Dosage: 560 MILLIGRAM/KILOGRAM 1 CYCLE, D1, VCR ACT-D+CBP (SECOND LINE TREATMENT)
  7. BEVACIZUMAB [Concomitant]
     Active Substance: BEVACIZUMAB
     Indication: Alveolar rhabdomyosarcoma
     Dosage: 7.5 MG/KG 1 CYCLE, D1
  8. BEVACIZUMAB [Concomitant]
     Active Substance: BEVACIZUMAB
     Dosage: 7.5 MG/KG 1 CYCLE, D1
  9. BEVACIZUMAB [Concomitant]
     Active Substance: BEVACIZUMAB
     Dosage: 7.5 MG/KG 1 CYCLE, D1
  10. BEVACIZUMAB [Concomitant]
     Active Substance: BEVACIZUMAB
     Dosage: 7.5 MG/KG 1 CYCLE, D1
  11. ACTINOMYCIN D [Concomitant]
     Active Substance: DACTINOMYCIN
     Indication: Alveolar rhabdomyosarcoma
     Dosage: 0.045 MG/KG (DMAX=2.5 MG)
     Route: 065
  12. ACTINOMYCIN D [Concomitant]
     Active Substance: DACTINOMYCIN
     Dosage: 0.045 MG/KG (DMAX=2.5 MG), D1
     Route: 065
  13. ACTINOMYCIN D [Concomitant]
     Active Substance: DACTINOMYCIN
     Dosage: 0.045 MG/KG (DMAX=2.5 MG), D1
     Route: 065
  14. ACTINOMYCIN D [Concomitant]
     Active Substance: DACTINOMYCIN
     Dosage: 0.045 MG/KG (DMAX=2.5 MG), D1
     Route: 065
  15. ETOPOSIDE [Concomitant]
     Active Substance: ETOPOSIDE
     Indication: Alveolar rhabdomyosarcoma
     Dosage: 450 MG/M2 1 CYCLE, 150 MG/M2; D1-D3
     Route: 065
  16. IRINOTECAN [Concomitant]
     Active Substance: IRINOTECAN
     Indication: Alveolar rhabdomyosarcoma
     Dosage: 250 MG/M2 1 CYCLE, 50 MG D1-D5
     Route: 065
  17. ADRIAMYCIN [Concomitant]
     Active Substance: DOXORUBICIN HYDROCHLORIDE
     Indication: Alveolar rhabdomyosarcoma
     Dosage: 60 MG/M2 1 CYCLE, 30 MG/M2; D1-D2
     Route: 065
  18. IFOSFAMIDE [Concomitant]
     Active Substance: IFOSFAMIDE
     Indication: Alveolar rhabdomyosarcoma
     Dosage: 9 G/M2 1 CYCLE, 1.8 G/M2; D1-D5
     Route: 065

REACTIONS (2)
  - Neuropathy peripheral [Recovering/Resolving]
  - Drug interaction [Recovering/Resolving]
